FAERS Safety Report 9325389 (Version 1)
Quarter: 2013Q2

REPORT INFORMATION
  Report Type: Spontaneous
  Country: US (occurrence: US)
  Receive Date: 20130604
  Receipt Date: 20130604
  Transmission Date: 20140414
  Serious: No
  Sender: FDA-Public Use
  Company Number: US-009507513-1305USA016901

PATIENT
  Sex: Male

DRUGS (3)
  1. SAPHRIS [Suspect]
     Indication: BIPOLAR DISORDER
     Dosage: 10 MG, HS
     Route: 060
     Dates: end: 20130527
  2. LITHIUM [Concomitant]
     Dosage: 600 MG, BID
  3. KLONOPIN [Concomitant]
     Dosage: 1-2 MG, QD

REACTIONS (4)
  - Eye swelling [Unknown]
  - Skin mass [Unknown]
  - Lip swelling [Unknown]
  - Inappropriate schedule of drug administration [Unknown]
